FAERS Safety Report 4581468-7 (Version None)
Quarter: 2005Q1

REPORT INFORMATION
  Report Type: 
  Country: None (occurrence: None)
  Receive Date: 20050214
  Receipt Date: 20041029
  Transmission Date: 20050727
  Serious: No
  Sender: FDA-Public Use
  Company Number: US-GLAXOSMITHKLINE-A0531834A

PATIENT
  Age: 67 Year
  Sex: Female

DRUGS (8)
  1. LAMICTAL [Suspect]
     Indication: BIPOLAR DISORDER
     Dosage: 200MG PER DAY
     Route: 048
     Dates: start: 20040910
  2. ASACOL [Concomitant]
  3. PREVACID [Concomitant]
  4. HYOSCYAMINE [Concomitant]
  5. FUROSEMIDE [Concomitant]
  6. PERPHENAZINE [Concomitant]
  7. VALIUM [Concomitant]
  8. COLESTID [Concomitant]

REACTIONS (4)
  - CONFUSIONAL STATE [None]
  - INSOMNIA [None]
  - MEMORY IMPAIRMENT [None]
  - MIDDLE INSOMNIA [None]
